FAERS Safety Report 18163334 (Version 3)
Quarter: 2020Q3

REPORT INFORMATION
  Report Type: Report from Study
  Country: US (occurrence: US)
  Receive Date: 20200818
  Receipt Date: 20200925
  Transmission Date: 20201103
  Serious: Yes (Death, Other)
  Sender: FDA-Public Use
  Company Number: US-AGIOS-2008US02088

PATIENT

DRUGS (1)
  1. TIBSOVO [Suspect]
     Active Substance: IVOSIDENIB
     Indication: CHOLANGIOCARCINOMA
     Dosage: 250 MG, 2 TABLETS (500 MG), QD
     Route: 048
     Dates: start: 20200724, end: 20200916

REACTIONS (4)
  - Off label use [Recovered/Resolved]
  - Abdominal pain [Unknown]
  - Adenocarcinoma [Unknown]
  - Malignant neoplasm progression [Fatal]

NARRATIVE: CASE EVENT DATE: 20200724
